FAERS Safety Report 19454868 (Version 3)
Quarter: 2021Q3

REPORT INFORMATION
  Report Type: Report from Study
  Country: ES (occurrence: ES)
  Receive Date: 20210623
  Receipt Date: 20210727
  Transmission Date: 20211014
  Serious: Yes (Hospitalization, Other)
  Sender: FDA-Public Use
  Company Number: ES-TAKEDA-2021TUS037018

PATIENT
  Age: 63 Year
  Sex: Female

DRUGS (12)
  1. TEDUGLUTIDE [Suspect]
     Active Substance: TEDUGLUTIDE
     Indication: SHORT-BOWEL SYNDROME
     Dosage: 2.40 MILLIGRAM
     Route: 065
     Dates: start: 20190522, end: 20191119
  2. TEDUGLUTIDE [Suspect]
     Active Substance: TEDUGLUTIDE
     Indication: SHORT-BOWEL SYNDROME
     Dosage: 2.40 MILLIGRAM
     Route: 065
     Dates: start: 20190522, end: 20191119
  3. SCOPOLAMINE BUTYLBROMIDE [Concomitant]
     Active Substance: SCOPOLAMINE
     Indication: MUSCLE SPASMS
     Dosage: 20 MILLIGRAM, QD
     Route: 042
     Dates: start: 20200225, end: 20200229
  4. ERTAPENEM. [Concomitant]
     Active Substance: ERTAPENEM SODIUM
     Indication: INFECTION
     Dosage: 1 GRAM, QD
     Route: 042
     Dates: start: 20210410, end: 20210412
  5. ANIDULAFUNGIN [Concomitant]
     Active Substance: ANIDULAFUNGIN
     Indication: INFECTION
     Dosage: 100 GRAM, QD
     Route: 042
     Dates: start: 20210501, end: 20210502
  6. DAPTOMICINA [Concomitant]
     Active Substance: DAPTOMYCIN
     Indication: URINARY TRACT INFECTION
     Dosage: 300 MILLIGRAM, QD
     Route: 042
     Dates: start: 20200209, end: 20200211
  7. IRON SUCROSE [Concomitant]
     Active Substance: IRON SUCROSE
     Indication: IRON DEFICIENCY
     Dosage: 200 MILLIGRAM, 3/WEEK
     Route: 042
     Dates: start: 20200219, end: 20200302
  8. MEROPENEM. [Concomitant]
     Active Substance: MEROPENEM
     Indication: INFECTION
     Dosage: 1 GRAM, TID
     Route: 042
     Dates: start: 20210509, end: 20210510
  9. TEDUGLUTIDE [Suspect]
     Active Substance: TEDUGLUTIDE
     Indication: SHORT-BOWEL SYNDROME
     Dosage: 2.40 MILLIGRAM
     Route: 065
     Dates: start: 20190522, end: 20191119
  10. TEDUGLUTIDE [Suspect]
     Active Substance: TEDUGLUTIDE
     Indication: SHORT-BOWEL SYNDROME
     Dosage: 2.40 MILLIGRAM
     Route: 065
     Dates: start: 20190522, end: 20191119
  11. DAPTOMYCIN. [Concomitant]
     Active Substance: DAPTOMYCIN
     Indication: INFECTION
     Dosage: 500 MILLIGRAM, QD
     Route: 042
     Dates: start: 20210430, end: 20210506
  12. METOCLOPRAMIDE. [Concomitant]
     Active Substance: METOCLOPRAMIDE
     Indication: NAUSEA
     Dosage: 10 MILLIGRAM, ONE DOSE
     Route: 042
     Dates: start: 20200209, end: 20200209

REACTIONS (8)
  - Urinary tract infection [Recovered/Resolved]
  - Device related infection [Recovered/Resolved]
  - Bacteraemia [Recovered/Resolved]
  - Skin irritation [Not Recovered/Not Resolved]
  - Gastrointestinal haemorrhage [Recovered/Resolved]
  - Escherichia sepsis [Not Recovered/Not Resolved]
  - Vascular device infection [Recovered/Resolved]
  - COVID-19 [Recovered/Resolved]

NARRATIVE: CASE EVENT DATE: 20201107
